FAERS Safety Report 7701844-0 (Version None)
Quarter: 2011Q3

REPORT INFORMATION
  Report Type: 
  Country: None (occurrence: None)
  Receive Date: 20110822
  Receipt Date: 20110818
  Transmission Date: 20111222
  Serious: Yes (Death, Hospitalization)
  Sender: FDA-Public Use
  Company Number: FR-SANOFI-AVENTIS-2011SA052792

PATIENT
  Age: 80 Year
  Sex: Female

DRUGS (14)
  1. MULTAQ [Suspect]
     Route: 048
     Dates: start: 20110317, end: 20110426
  2. LEVOFLOXACIN [Suspect]
     Route: 065
     Dates: start: 20110415, end: 20110415
  3. ERYTHROMYCIN [Suspect]
     Route: 065
     Dates: start: 20110420, end: 20110426
  4. PREVISCAN [Concomitant]
     Route: 065
     Dates: start: 20110329
  5. SERETIDE [Concomitant]
     Route: 065
     Dates: start: 20110414
  6. ATORVASTATIN CALCIUM [Concomitant]
     Route: 065
     Dates: start: 20110330
  7. NEO-MERCAZOLE TAB [Suspect]
     Indication: HYPERTHYROIDISM
     Route: 065
     Dates: start: 20110316, end: 20110329
  8. LASIX [Concomitant]
     Route: 065
     Dates: start: 20110330
  9. AUGMENTIN '125' [Suspect]
     Route: 065
     Dates: start: 20110328, end: 20110409
  10. AUGMENTIN '125' [Suspect]
     Route: 065
     Dates: start: 20110413, end: 20110421
  11. LEVOFLOXACIN [Suspect]
     Route: 065
     Dates: start: 20110416, end: 20110426
  12. NEO-MERCAZOLE TAB [Suspect]
     Route: 065
     Dates: start: 20110329, end: 20110426
  13. PULMICORT [Concomitant]
     Route: 065
     Dates: start: 20110414
  14. AMLODIPINE BESYLATE [Concomitant]
     Route: 065
     Dates: start: 20110330

REACTIONS (1)
  - RENAL FAILURE ACUTE [None]
